FAERS Safety Report 8328526-9 (Version None)
Quarter: 2012Q2

REPORT INFORMATION
  Report Type: 
  Country: None (occurrence: None)
  Receive Date: 20120430
  Receipt Date: 20120418
  Transmission Date: 20120825
  Serious: Yes (Other)
  Sender: FDA-Public Use
  Company Number: 1262205

PATIENT
  Age: 63 Year
  Sex: Female

DRUGS (3)
  1. DOCETAXEL [Suspect]
     Indication: BREAST CANCER
     Dosage: INTRAVENOUS DRIP
     Route: 041
     Dates: start: 20110512, end: 20110512
  2. BETAPRED [Concomitant]
  3. ONDANSETRON [Concomitant]

REACTIONS (9)
  - TACHYPNOEA [None]
  - BLOOD PRESSURE INCREASED [None]
  - RESPIRATORY RATE INCREASED [None]
  - HYPERSENSITIVITY [None]
  - NAUSEA [None]
  - DEPRESSED LEVEL OF CONSCIOUSNESS [None]
  - FLUSHING [None]
  - COLD SWEAT [None]
  - INFUSION RELATED REACTION [None]
